FAERS Safety Report 15741307 (Version 6)
Quarter: 2019Q1

REPORT INFORMATION
  Report Type: Report from Study
  Country: GB (occurrence: GB)
  Receive Date: 20181219
  Receipt Date: 20190312
  Transmission Date: 20190417
  Serious: Yes (Life-Threatening, Hospitalization, Other)
  Sender: FDA-Public Use
  Company Number: GB-ASTELLAS-2018US016734

PATIENT
  Age: 40 Year
  Sex: Female
  Weight: 65 kg

DRUGS (16)
  1. ASP2215 [Suspect]
     Active Substance: GILTERITINIB
     Dosage: UNK UNK, ONCE DAILY
     Route: 048
     Dates: start: 20180608, end: 20180726
  2. ASP2215 [Suspect]
     Active Substance: GILTERITINIB
     Dosage: UNK, ONCE DAILY
     Route: 048
     Dates: start: 20181113, end: 20181219
  3. CLINDAMYCIN. [Concomitant]
     Active Substance: CLINDAMYCIN
     Indication: PRODUCT USED FOR UNKNOWN INDICATION
     Route: 065
  4. ACYCLOVIR                          /00587301/ [Concomitant]
     Active Substance: ACYCLOVIR
     Route: 042
     Dates: start: 20180423, end: 20180430
  5. FLUCONAZOLE. [Concomitant]
     Active Substance: FLUCONAZOLE
     Indication: HEPATIC CANDIDIASIS
     Route: 048
     Dates: start: 20171204, end: 20180422
  6. ACICLOVIR [Concomitant]
     Active Substance: ACYCLOVIR
     Indication: PROPHYLAXIS
     Route: 048
     Dates: start: 20180209, end: 20180422
  7. ACICLOVIR [Concomitant]
     Active Substance: ACYCLOVIR
     Route: 048
     Dates: start: 20180423, end: 20180430
  8. FLUCONAZOLE. [Concomitant]
     Active Substance: FLUCONAZOLE
     Route: 048
     Dates: start: 20180501
  9. ACYCLOVIR                          /00587301/ [Concomitant]
     Active Substance: ACYCLOVIR
     Route: 048
     Dates: start: 20180501
  10. LEVOTHYROXINE. [Concomitant]
     Active Substance: LEVOTHYROXINE
     Indication: HYPOTHYROIDISM
     Route: 048
     Dates: start: 20180327
  11. ASP2215 [Suspect]
     Active Substance: GILTERITINIB
     Indication: ACUTE MYELOID LEUKAEMIA
     Dosage: UNK UNK, ONCE DAILY
     Route: 048
     Dates: start: 20180309, end: 20180419
  12. ACYCLOVIR                          /00587301/ [Concomitant]
     Active Substance: ACYCLOVIR
     Indication: PROPHYLAXIS
     Route: 048
     Dates: start: 20180209, end: 20180422
  13. FLUCONAZOLE. [Concomitant]
     Active Substance: FLUCONAZOLE
     Route: 042
     Dates: start: 20180423, end: 20180430
  14. ACICLOVIR [Concomitant]
     Active Substance: ACYCLOVIR
     Route: 048
     Dates: start: 20180501
  15. ASP2215 [Suspect]
     Active Substance: GILTERITINIB
     Dosage: UNK UNK, ONCE DAILY
     Route: 048
     Dates: start: 20180517
  16. ASP2215 [Suspect]
     Active Substance: GILTERITINIB
     Dosage: UNK, ONCE DAILY
     Route: 048
     Dates: start: 20180928

REACTIONS (5)
  - Acute kidney injury [Recovered/Resolved]
  - Neutrophil count decreased [Recovered/Resolved]
  - Neutrophil count decreased [Recovered/Resolved]
  - Pseudomonal sepsis [Recovered/Resolved]
  - Adenovirus infection [Recovered/Resolved]

NARRATIVE: CASE EVENT DATE: 20180328
